FAERS Safety Report 19735124 (Version 5)
Quarter: 2021Q3

REPORT INFORMATION
  Report Type: Report from Study
  Country: None (occurrence: CO)
  Receive Date: 20210823
  Receipt Date: 20210910
  Transmission Date: 20211014
  Serious: Yes (Hospitalization, Other)
  Sender: FDA-Public Use
  Company Number: CO-ABBVIE-21K-036-4047473-00

PATIENT
  Age: 74 Year
  Sex: Female

DRUGS (2)
  1. VENCLEXTA [Suspect]
     Active Substance: VENETOCLAX
     Indication: CHRONIC LYMPHOCYTIC LEUKAEMIA
     Route: 048
     Dates: start: 20210410, end: 20210416
  2. VENCLEXTA [Suspect]
     Active Substance: VENETOCLAX
     Route: 048
     Dates: start: 2021, end: 20210902

REACTIONS (10)
  - Vomiting [Not Recovered/Not Resolved]
  - Chronic lymphocytic leukaemia recurrent [Recovering/Resolving]
  - Platelet disorder [Recovering/Resolving]
  - Deafness [Recovering/Resolving]
  - Pallor [Recovering/Resolving]
  - Oxygen saturation decreased [Recovering/Resolving]
  - Somnolence [Not Recovered/Not Resolved]
  - Colitis [Not Recovered/Not Resolved]
  - Blood potassium abnormal [Unknown]
  - Decreased appetite [Not Recovered/Not Resolved]

NARRATIVE: CASE EVENT DATE: 2021
